FAERS Safety Report 4804326-9 (Version None)
Quarter: 2005Q4

REPORT INFORMATION
  Report Type: 
  Country: None (occurrence: None)
  Receive Date: 20051017
  Receipt Date: 20051004
  Transmission Date: 20060501
  Serious: Yes (Life-Threatening, Hospitalization, Other)
  Sender: FDA-Public Use
  Company Number: 2005112413

PATIENT
  Age: 17 Year
  Sex: Female
  Weight: 54.4316 kg

DRUGS (2)
  1. DILANTIN [Suspect]
     Indication: COMPLEX PARTIAL SEIZURES
     Dosage: 200 MG (1 IN 1 D), ORAL
     Route: 048
     Dates: start: 20050604, end: 20050709
  2. DILANTIN [Suspect]
     Indication: CONVULSION
     Dosage: 200 MG (1 IN 1 D), ORAL
     Route: 048
     Dates: start: 20050604, end: 20050709

REACTIONS (7)
  - GLOMERULONEPHRITIS [None]
  - HYPERSENSITIVITY [None]
  - RASH [None]
  - RENAL FAILURE ACUTE [None]
  - RENAL VASCULITIS [None]
  - SWELLING [None]
  - VIRAL INFECTION [None]
